FAERS Safety Report 21914477 (Version 5)
Quarter: 2023Q1

REPORT INFORMATION
  Report Type: Spontaneous
  Country: NZ (occurrence: NZ)
  Receive Date: 20230126
  Receipt Date: 20230315
  Transmission Date: 20230418
  Serious: Yes (Hospitalization, Other)
  Sender: FDA-Public Use
  Company Number: NZ-BEIGENE AUS PTY LTD-BGN-2023-000224

PATIENT
  Age: 73 Year
  Sex: Male
  Weight: 92 kg

DRUGS (28)
  1. AZACITIDINE [Suspect]
     Active Substance: AZACITIDINE
     Indication: Myelodysplastic syndrome
     Dosage: 159 MILLIGRAM, QD
     Route: 042
     Dates: start: 20220919
  2. AZACITIDINE [Suspect]
     Active Substance: AZACITIDINE
     Dosage: 158 MILLIGRAM, QD
     Route: 042
     Dates: start: 20221222
  3. BGB-11417 [Suspect]
     Active Substance: BGB-11417
     Indication: Myelodysplastic syndrome
     Dates: start: 20220919
  4. BGB-11417 [Suspect]
     Active Substance: BGB-11417
     Dates: start: 20221214
  5. CANDESARTAN CILEXETIL [Concomitant]
     Active Substance: CANDESARTAN CILEXETIL
     Indication: Hypertension
     Route: 048
     Dates: start: 20131126
  6. CINCHOCAINE;HYDROCORTISONE [Concomitant]
     Indication: Anorectal discomfort
     Route: 061
     Dates: start: 20101216
  7. CINCHOCAINE;HYDROCORTISONE [Concomitant]
     Indication: Proctalgia
  8. CINCHOCAINE;HYDROCORTISONE [Concomitant]
     Indication: Anal pruritus
  9. CINCHOCAINE;HYDROCORTISONE [Concomitant]
     Indication: Anal dilatation
  10. CETIRIZINE HYDROCHLORIDE [Concomitant]
     Active Substance: CETIRIZINE HYDROCHLORIDE
     Indication: Rhinitis allergic
     Dosage: 10 MILLIGRAM
     Route: 048
     Dates: start: 20220923
  11. ALLOPURINOL [Concomitant]
     Active Substance: ALLOPURINOL
     Indication: Gout
     Dosage: 300 MILLIGRAM
     Dates: start: 20101101
  12. ALLOPURINOL [Concomitant]
     Active Substance: ALLOPURINOL
     Dosage: 100 MILLIGRAM
     Route: 048
     Dates: start: 20220923
  13. DOCUSATE SODIUM [Concomitant]
     Active Substance: DOCUSATE SODIUM
     Indication: Constipation
     Dosage: 50 MILLIGRAM
     Route: 048
     Dates: start: 20220923
  14. SENNOSIDE B [Concomitant]
     Active Substance: SENNOSIDE B
     Indication: Constipation
     Dosage: 8 MILLIGRAM
     Route: 048
     Dates: start: 20220923
  15. METOCLOPRAMIDE HYDROCHLORIDE ANHYDROUS [Concomitant]
     Active Substance: METOCLOPRAMIDE HYDROCHLORIDE ANHYDROUS
     Indication: Prophylaxis of nausea and vomiting
     Dosage: 10 MILLIGRAM
     Route: 048
     Dates: start: 20220923
  16. LACTULOSE [Concomitant]
     Active Substance: LACTULOSE
     Indication: Constipation
     Dosage: 3.34 G/5 ML LIQUID
     Route: 048
     Dates: start: 20220923
  17. ONDANSETRON [Concomitant]
     Active Substance: ONDANSETRON
     Indication: Prophylaxis of nausea and vomiting
     Route: 048
     Dates: start: 20220923
  18. VALACYCLOVIR HYDROCHLORIDE [Concomitant]
     Active Substance: VALACYCLOVIR HYDROCHLORIDE
     Indication: Antiviral prophylaxis
     Dosage: 500 MILLIGRAM
     Route: 048
     Dates: start: 20220923
  19. TRANEXAMIC ACID [Concomitant]
     Active Substance: TRANEXAMIC ACID
     Indication: Thrombocytopenia
     Route: 048
     Dates: start: 20221124
  20. KENALOG [Concomitant]
     Active Substance: TRIAMCINOLONE ACETONIDE
     Indication: Mouth ulceration
     Route: 061
     Dates: start: 20221125
  21. AMOXICILLIN\CLAVULANIC ACID [Concomitant]
     Active Substance: AMOXICILLIN\CLAVULANIC ACID
     Indication: Tooth infection
     Dosage: 625 MILLIGRAM
     Route: 048
     Dates: start: 20221210, end: 20221219
  22. CODEINE [Concomitant]
     Active Substance: CODEINE
     Indication: Tooth infection
     Route: 048
     Dates: start: 20221210
  23. ATORVASTATIN [Concomitant]
     Active Substance: ATORVASTATIN
     Indication: Dyslipidaemia
     Dosage: 40 MILLIGRAM
     Route: 048
     Dates: start: 20110221
  24. THIAMINE HYDROCHLORIDE [Concomitant]
     Active Substance: THIAMINE HYDROCHLORIDE
     Indication: Gout
     Dosage: 50 MILLIGRAM
     Route: 048
     Dates: start: 20190423
  25. AMLODIPINE [Concomitant]
     Active Substance: AMLODIPINE BESYLATE
     Indication: Hypertension
     Dosage: 5 MILLIGRAM
     Route: 048
     Dates: start: 20200807
  26. ACETAMINOPHEN [Concomitant]
     Active Substance: ACETAMINOPHEN
     Indication: Gout
     Dosage: 500 MILLIGRAM
     Dates: start: 20220726
  27. ACETAMINOPHEN [Concomitant]
     Active Substance: ACETAMINOPHEN
     Dates: start: 20221125
  28. POLYETHYLENE GLYCOL 3350\POTASSIUM CHLORIDE\SODIUM BICARBONATE\SODIUM [Concomitant]
     Active Substance: POLYETHYLENE GLYCOL 3350\POTASSIUM CHLORIDE\SODIUM BICARBONATE\SODIUM CHLORIDE
     Indication: Constipation prophylaxis
     Dates: start: 20221025

REACTIONS (5)
  - Neutropenic sepsis [Recovered/Resolved]
  - Defaecation urgency [Unknown]
  - Oedema peripheral [Unknown]
  - Pseudomonas infection [Unknown]
  - Mouth ulceration [Unknown]

NARRATIVE: CASE EVENT DATE: 20230110
